FAERS Safety Report 5521600-1 (Version None)
Quarter: 2007Q4

REPORT INFORMATION
  Report Type: 
  Country: None (occurrence: None)
  Receive Date: 20071120
  Receipt Date: 20071113
  Transmission Date: 20080405
  Serious: Yes (Hospitalization, Other)
  Sender: FDA-Public Use
  Company Number: JP-BRISTOL-MYERS SQUIBB COMPANY-13980115

PATIENT
  Age: 72 Year
  Sex: Female

DRUGS (5)
  1. GATIFLO TABS [Suspect]
     Indication: MYCOBACTERIAL INFECTION
     Route: 048
     Dates: start: 20071012, end: 20071031
  2. EBUTOL [Suspect]
     Route: 048
     Dates: start: 20071012
  3. KLARICID [Suspect]
     Route: 048
     Dates: start: 20071012
  4. KANAMYCIN [Suspect]
     Indication: MYCOBACTERIAL INFECTION
     Dosage: 2.25 MG/WEEK INTO 3 DIVIDED DOSES.
     Route: 030
     Dates: start: 20071012, end: 20071109
  5. MUCOSTA [Concomitant]
     Route: 048
     Dates: start: 20071012

REACTIONS (1)
  - THROMBOCYTOPENIA [None]
